FAERS Safety Report 9852817 (Version 1)
Quarter: 2014Q1

REPORT INFORMATION
  Report Type: Spontaneous
  Country: US (occurrence: US)
  Receive Date: 20140129
  Receipt Date: 20140129
  Transmission Date: 20141002
  Serious: Yes (Hospitalization)
  Sender: FDA-Public Use
  Company Number: US-B.I. PHARMACEUTICALS,INC./RIDGEFIELD-2014-BI-03552BP

PATIENT
  Sex: Female
  Weight: 59 kg

DRUGS (6)
  1. COMBIVENT [Suspect]
     Indication: CHRONIC OBSTRUCTIVE PULMONARY DISEASE
     Route: 055
     Dates: start: 1996, end: 201312
  2. PRAVASTATIN [Concomitant]
     Indication: BLOOD CHOLESTEROL INCREASED
     Dosage: 40 MG
     Route: 048
  3. HYDROXYUREA [Concomitant]
     Indication: BONE MARROW DISORDER
     Dosage: 500 MG
     Route: 048
  4. GABAPENTIN [Concomitant]
     Indication: HOT FLUSH
     Dosage: 1200 MG
     Route: 048
  5. NORTRIPTYLINE [Concomitant]
     Indication: SLEEP DISORDER
     Dosage: 10 MG
     Route: 048
  6. OXYCODONE/ ACETAMINOPHEN [Concomitant]
     Indication: ARTHRALGIA
     Route: 048

REACTIONS (7)
  - Arthralgia [Recovered/Resolved]
  - Back pain [Recovered/Resolved]
  - Musculoskeletal pain [Recovered/Resolved]
  - Splenic rupture [Recovered/Resolved]
  - Musculoskeletal pain [Recovered/Resolved]
  - Arthralgia [Not Recovered/Not Resolved]
  - Asthenia [Not Recovered/Not Resolved]
